FAERS Safety Report 5063785-X (Version None)
Quarter: 2006Q3

REPORT INFORMATION
  Report Type: 
  Country: None (occurrence: None)
  Receive Date: 20060727
  Receipt Date: 20060718
  Transmission Date: 20061208
  Serious: Yes (Life-Threatening, Hospitalization)
  Sender: FDA-Public Use
  Company Number: US-GILEAD-2006-0009890

PATIENT
  Sex: Male
  Weight: 80.358 kg

DRUGS (11)
  1. TRUVADA [Suspect]
     Indication: HIV INFECTION
     Route: 048
     Dates: start: 20060410
  2. KALETRA [Suspect]
     Indication: HIV INFECTION
     Route: 048
     Dates: start: 20060410
  3. MULTIVITAMIN [Concomitant]
     Route: 048
  4. AMINA-ALL [Concomitant]
     Indication: NUTRITIONAL SUPPORT
     Route: 048
  5. WELLBUTRIN [Concomitant]
     Indication: DEPRESSION
     Route: 048
  6. RESTORIL [Concomitant]
     Indication: INSOMNIA
     Route: 048
     Dates: start: 20060404
  7. IMODIUM [Concomitant]
     Indication: DIARRHOEA
     Route: 048
     Dates: start: 20060412
  8. SEROQUEL [Concomitant]
     Indication: DEPRESSION
     Route: 048
     Dates: start: 20060418
  9. METROGEL [Concomitant]
     Indication: FOLLICULITIS
     Route: 061
     Dates: start: 20060508
  10. ADVIL COLD AND SINUS [Concomitant]
     Indication: UPPER RESPIRATORY TRACT INFECTION
     Route: 048
     Dates: start: 20060528
  11. CYMBALTA [Concomitant]
     Indication: DEPRESSION
     Route: 048
     Dates: start: 20060522

REACTIONS (7)
  - DIARRHOEA [None]
  - FOLLICULITIS [None]
  - IMMUNE RECONSTITUTION SYNDROME [None]
  - MENINGITIS CRYPTOCOCCAL [None]
  - NAUSEA [None]
  - SINUS DISORDER [None]
  - UPPER RESPIRATORY TRACT INFECTION [None]
